FAERS Safety Report 22199385 (Version 2)
Quarter: 2023Q2

REPORT INFORMATION
  Report Type: Spontaneous
  Country: US (occurrence: US)
  Receive Date: 20230411
  Receipt Date: 20230623
  Transmission Date: 20230721
  Serious: Yes (Other)
  Sender: FDA-Public Use
  Company Number: US-GRUNENTHAL-2023-102654

PATIENT
  Age: 55 Year
  Sex: Female

DRUGS (22)
  1. TRAMADOL HYDROCHLORIDE [Suspect]
     Active Substance: TRAMADOL HYDROCHLORIDE
     Indication: Musculoskeletal chest pain
     Dosage: 50 MILLIGRAM, 3/DAY
     Route: 048
     Dates: start: 2011
  2. TRAMADOL HYDROCHLORIDE [Suspect]
     Active Substance: TRAMADOL HYDROCHLORIDE
     Indication: Arthralgia
     Dosage: 50 MILLIGRAM, 4/DAY
     Route: 065
  3. TRAMADOL HYDROCHLORIDE [Suspect]
     Active Substance: TRAMADOL HYDROCHLORIDE
     Dosage: 100 MILLIGRAM, 4/DAY
     Route: 065
     Dates: start: 2017
  4. TRAMADOL HYDROCHLORIDE [Suspect]
     Active Substance: TRAMADOL HYDROCHLORIDE
     Dosage: 150 MILLIGRAM, 5/DAY
     Route: 065
  5. TRAMADOL HYDROCHLORIDE [Suspect]
     Active Substance: TRAMADOL HYDROCHLORIDE
     Dosage: 150 MILLIGRAM, 4/DAY
     Route: 065
  6. TRAMADOL HYDROCHLORIDE [Suspect]
     Active Substance: TRAMADOL HYDROCHLORIDE
     Dosage: 300 MILLIGRAM, 1/DAY
     Route: 065
  7. TRAMADOL HYDROCHLORIDE [Suspect]
     Active Substance: TRAMADOL HYDROCHLORIDE
     Dosage: 1250 MILLIGRAM, 1/DAY
     Route: 065
  8. TRAMADOL HYDROCHLORIDE [Suspect]
     Active Substance: TRAMADOL HYDROCHLORIDE
     Dosage: DOSAGE OF TRAMADOL WAS FURTHER INCREASED TO TWO 50 MG TABLETS FOUR TIMES DAILY, WRITTEN FOR 150-180
     Route: 048
     Dates: start: 2017
  9. TRAMADOL HYDROCHLORIDE [Suspect]
     Active Substance: TRAMADOL HYDROCHLORIDE
     Dosage: ADDITIONAL TRAMADOL OFF THE STREET FOR SEVERAL YEARS, DESCRIBED TAKING 20-25 TABLETS OF TRAMADOL 5
     Route: 048
  10. TRAMADOL HYDROCHLORIDE [Suspect]
     Active Substance: TRAMADOL HYDROCHLORIDE
     Dosage: PRESCRIBED 50 MG TRAMADOL TABLETS WITH INSTRUCTIONS TO TAKE 150 MG (THREE TABLETS) FIVE TIMES PER DA
     Route: 048
     Dates: start: 2021
  11. TRAMADOL HYDROCHLORIDE [Suspect]
     Active Substance: TRAMADOL HYDROCHLORIDE
     Dosage: INSTRUCTED TO DECREASE DAILY DOSE FURTHER BY TAKING TRAMADOL 150 MG (THREE 50 MG TABLETS) FOUR TIMES
     Route: 048
     Dates: start: 2021
  12. TRAMADOL HYDROCHLORIDE [Suspect]
     Active Substance: TRAMADOL HYDROCHLORIDE
     Dosage: 50-100 MG, 180 TABLETS TO TAKE FOUR TIMES DAILY
     Route: 048
  13. TRAMADOL HYDROCHLORIDE [Suspect]
     Active Substance: TRAMADOL HYDROCHLORIDE
     Dosage: TAPERED FROM 12 TABLETS OF 50 MG TRAMADOL PER DAY TO SIX TABLETS OF 50 MG TRAMADOL PER DAY
     Route: 048
     Dates: start: 2021
  14. TRAMADOL HYDROCHLORIDE [Suspect]
     Active Substance: TRAMADOL HYDROCHLORIDE
     Dosage: ADDITIONAL TRAMADOL OFF THE STREET FOR SEVERAL YEARS, DESCRIBED TAKING 20-25 TABLETS OF TRAMADOL 5
     Route: 048
  15. TRAMADOL HYDROCHLORIDE [Suspect]
     Active Substance: TRAMADOL HYDROCHLORIDE
     Dosage: TRAMADOL 50 MG TABLETS IN 2011 DOSED THREE TIMES DAILY
     Route: 048
     Dates: start: 2011
  16. TRAMADOL HYDROCHLORIDE [Suspect]
     Active Substance: TRAMADOL HYDROCHLORIDE
     Dosage: SLOWLY ESCALATED THE DOSE TO FOUR TIMES DAILY, PRESCRIBING REFILLS RANGING FROM 90 TO 120 TABLETS
     Route: 048
  17. OXYCODONE [Suspect]
     Active Substance: OXYCODONE
     Indication: Musculoskeletal chest pain
     Dosage: 4 DOSAGE FORM, 1/DAY
     Route: 065
  18. OXYCODONE [Suspect]
     Active Substance: OXYCODONE
     Indication: Arthralgia
     Dosage: ACQUIRED SEVERAL HUNDRED OXYCODONE FROM A DECEASED FAMILY MEMBER. WHEN HER TRAMADOL SUPPLY WAS LOW,
     Route: 048
  19. GABAPENTIN [Concomitant]
     Active Substance: GABAPENTIN
     Indication: Musculoskeletal chest pain
     Dosage: INTERMITTENT USE
     Route: 065
  20. PARACEA FORTE [Concomitant]
     Indication: Musculoskeletal chest pain
     Dosage: UNK
     Route: 065
  21. CYCLOBENZAPRINE [Concomitant]
     Active Substance: CYCLOBENZAPRINE
     Indication: Musculoskeletal chest pain
     Dosage: INTERMITTENT USE
     Route: 065
  22. PREGABALIN [Concomitant]
     Active Substance: PREGABALIN

REACTIONS (12)
  - Intentional product misuse [Recovered/Resolved]
  - Drug dependence [Recovering/Resolving]
  - Drug withdrawal syndrome [Recovering/Resolving]
  - Drug abuse [Unknown]
  - Feeling abnormal [Recovering/Resolving]
  - Disturbance in attention [Unknown]
  - Therapeutic product effect incomplete [Unknown]
  - Anxiety [Recovering/Resolving]
  - Agitation [Recovering/Resolving]
  - Analgesic drug level increased [Unknown]
  - Discomfort [Recovering/Resolving]
  - Overdose [Unknown]
